FAERS Safety Report 5897857-4 (Version None)
Quarter: 2008Q3

REPORT INFORMATION
  Report Type: 
  Country: None (occurrence: None)
  Receive Date: 20080924
  Receipt Date: 20080924
  Transmission Date: 20090109
  Serious: Yes (Hospitalization)
  Sender: FDA-Public Use
  Company Number: None

PATIENT
  Sex: Female
  Weight: 60 kg

DRUGS (9)
  1. RAPTIVA [Suspect]
     Indication: IMMUNOSUPPRESSION
     Dosage: 61 MG Q WEEK SQ
     Route: 058
     Dates: start: 20080807
  2. RAPTIVA [Suspect]
     Indication: RENAL TRANSPLANT
     Dosage: 61 MG Q WEEK SQ
     Route: 058
     Dates: start: 20080807
  3. SYNTHROID [Concomitant]
  4. PREDNISONE [Concomitant]
  5. NEXIUM [Concomitant]
  6. M.V.I. [Concomitant]
  7. LIPITOR [Concomitant]
  8. PLAVIX [Concomitant]
  9. ASPIRIN [Concomitant]

REACTIONS (8)
  - BLOOD CULTURE POSITIVE [None]
  - COUGH [None]
  - EPSTEIN-BARR VIRUS ANTIGEN POSITIVE [None]
  - MALAISE [None]
  - PYREXIA [None]
  - RASH [None]
  - STAPHYLOCOCCAL INFECTION [None]
  - WHITE BLOOD CELL COUNT INCREASED [None]
